FAERS Safety Report 8171606-1 (Version None)
Quarter: 2012Q1

REPORT INFORMATION
  Report Type: 
  Country: None (occurrence: None)
  Receive Date: 20120228
  Receipt Date: 20120220
  Transmission Date: 20120608
  Serious: Yes (Death, Other)
  Sender: FDA-Public Use
  Company Number: ES-ROXANE LABORATORIES, INC.-2010-RO-00988RO

PATIENT
  Age: 66 Year
  Sex: Female

DRUGS (6)
  1. CYCLOSPORINE [Suspect]
     Indication: IMMUNOSUPPRESSION
  2. AZATHIOPRINE [Suspect]
     Indication: IMMUNOSUPPRESSION
  3. DIGOXIN [Suspect]
     Indication: CARDIAC FAILURE CONGESTIVE
  4. EVEROLIMUS [Suspect]
     Indication: IMMUNOSUPPRESSION
  5. DIURETICS [Suspect]
     Indication: CARDIAC FAILURE CONGESTIVE
  6. PREDNISONE [Suspect]
     Indication: IMMUNOSUPPRESSION

REACTIONS (5)
  - RESPIRATORY DISORDER [None]
  - CORONARY ARTERY DISEASE [None]
  - CONGESTIVE CARDIOMYOPATHY [None]
  - INTRACARDIAC THROMBUS [None]
  - CARDIAC FAILURE CONGESTIVE [None]
